FAERS Safety Report 9566659 (Version 1)
Quarter: 2013Q3

REPORT INFORMATION
  Report Type: Spontaneous
  Country: US (occurrence: US)
  Receive Date: 20130930
  Receipt Date: 20130930
  Transmission Date: 20140515
  Serious: No
  Sender: FDA-Public Use
  Company Number: US-AMGEN-USASP2012061446

PATIENT
  Sex: Female
  Weight: 115.65 kg

DRUGS (7)
  1. ENBREL [Suspect]
     Indication: PRODUCT USED FOR UNKNOWN INDICATION
     Dosage: 50 MG, QWK
     Route: 058
  2. ACTIVELLA [Concomitant]
     Dosage: 0.5TO0.1
  3. LEVOTHYROXIN [Concomitant]
     Dosage: 25 MUG, UNK
  4. METHOTREXATE [Concomitant]
     Dosage: 20 MG, UNK
  5. LYRICA [Concomitant]
     Dosage: 100 MG, UNK
  6. TRAMADOL HCL [Concomitant]
     Dosage: 50 MG, UNK
  7. ACARBOSE [Concomitant]
     Dosage: 25 MG, UNK

REACTIONS (5)
  - Diarrhoea [Unknown]
  - Rhinorrhoea [Unknown]
  - Condition aggravated [Unknown]
  - Local swelling [Unknown]
  - Pain in extremity [Unknown]
